FAERS Safety Report 20445966 (Version 1)
Quarter: 2022Q1

REPORT INFORMATION
  Report Type: Spontaneous
  Country: SE (occurrence: SE)
  Receive Date: 20220208
  Receipt Date: 20220208
  Transmission Date: 20220423
  Serious: Yes (Disabling)
  Sender: FDA-Public Use
  Company Number: SE-PFIZER INC-202200215038

PATIENT
  Age: 75 Year
  Sex: Female

DRUGS (9)
  1. INFLIXIMAB [Suspect]
     Active Substance: INFLIXIMAB
     Indication: Arthritis
     Dosage: 300 MG
     Route: 042
     Dates: start: 20210719, end: 20211206
  2. URSODIOL [Concomitant]
     Active Substance: URSODIOL
     Dosage: 500 MG
  3. PROLIA [Concomitant]
     Active Substance: DENOSUMAB
     Dosage: 60 MG
  4. OMEPRAZOLE [Concomitant]
     Active Substance: OMEPRAZOLE
     Dosage: 20 MG
  5. FELODIPIN ACTAVIS [Concomitant]
     Dosage: 5 MG
  6. CALCICHEW D3 CITRON [Concomitant]
     Dosage: UNK
  7. TRAVATAN [Concomitant]
     Active Substance: TRAVOPROST
     Dosage: 40 MG/ML
  8. PREDNISOLONE [Concomitant]
     Active Substance: PREDNISOLONE
     Dosage: 5 MG
  9. INDERAL [Concomitant]
     Active Substance: PROPRANOLOL HYDROCHLORIDE
     Dosage: 10 MG

REACTIONS (2)
  - Tooth injury [Not Recovered/Not Resolved]
  - Off label use [Unknown]

NARRATIVE: CASE EVENT DATE: 20210719
